FAERS Safety Report 5898928-9 (Version None)
Quarter: 2008Q3

REPORT INFORMATION
  Report Type: 
  Country: None (occurrence: None)
  Receive Date: 20080925
  Receipt Date: 20080918
  Transmission Date: 20090109
  Serious: Yes (Hospitalization)
  Sender: FDA-Public Use
  Company Number: US-SANOFI-SYNTHELABO-F03200800096

PATIENT
  Sex: Female
  Weight: 77 kg

DRUGS (5)
  1. LISINOPRIL [Concomitant]
     Indication: HYPERTENSION
     Dosage: UNK
     Route: 065
  2. HYDROCHLOROTHIAZIDE [Concomitant]
     Indication: HYPERTENSION
     Dosage: UNK
     Route: 065
  3. FLUOROURACIL [Suspect]
     Indication: RECTAL CANCER
     Route: 042
     Dates: start: 20080829, end: 20080829
  4. AVASTIN [Suspect]
     Indication: RECTAL CANCER
     Dosage: 5 MG/KG QWEEK X 6
     Route: 042
     Dates: start: 20080827, end: 20080827
  5. OXALIPLATIN [Suspect]
     Indication: RECTAL CANCER
     Dosage: 40 MG/M2 EVERY OTHER WEEK X 3
     Route: 042
     Dates: start: 20080827, end: 20080827

REACTIONS (9)
  - ATRIAL FIBRILLATION [None]
  - BLOOD PHOSPHORUS DECREASED [None]
  - DEHYDRATION [None]
  - DIARRHOEA [None]
  - HYPOKALAEMIA [None]
  - HYPOTENSION [None]
  - LEUKOPENIA [None]
  - PLATELET COUNT DECREASED [None]
  - SEPSIS [None]
